FAERS Safety Report 20299727 (Version 1)
Quarter: 2022Q1

REPORT INFORMATION
  Report Type: Spontaneous
  Country: US (occurrence: None)
  Receive Date: 20220105
  Receipt Date: 20220105
  Transmission Date: 20220424
  Serious: Yes (Hospitalization)
  Sender: FDA-Public Use
  Company Number: None

PATIENT
  Age: 64 Year
  Sex: Female

DRUGS (1)
  1. HUMIRA [Suspect]
     Active Substance: ADALIMUMAB
     Indication: Rheumatoid arthritis
     Dosage: 40MG EVERY OTHER WEEK SC?
     Route: 058
     Dates: start: 20161004

REACTIONS (3)
  - Sepsis [None]
  - Kidney infection [None]
  - Urinary tract infection [None]

NARRATIVE: CASE EVENT DATE: 20220104
